FAERS Safety Report 6882791-3 (Version None)
Quarter: 2010Q3

REPORT INFORMATION
  Report Type: 
  Country: None (occurrence: None)
  Receive Date: 20100729
  Receipt Date: 20100719
  Transmission Date: 20110219
  Serious: Yes (Other)
  Sender: FDA-Public Use
  Company Number: NL-ROCHE-716584

PATIENT
  Age: 42 Year
  Sex: Female

DRUGS (6)
  1. CAPECITABINE [Suspect]
     Indication: GASTRIC CANCER
     Dosage: PREOPERATIVE: 3 CYCLES
     Route: 065
  2. CAPECITABINE [Suspect]
     Dosage: POSTOPERATIVE: 2 CYCLES
     Route: 065
  3. EPIRUBICIN [Suspect]
     Indication: GASTRIC CANCER
     Dosage: PREOPERATIVE: 3 CYCLES
     Route: 065
  4. EPIRUBICIN [Suspect]
     Dosage: POSTOPERATIVE: 2 CYCLES
     Route: 065
  5. CISPLATIN [Suspect]
     Indication: GASTRIC CANCER
     Dosage: PREOPERATIVE: 3 CYCLES
     Route: 065
  6. CISPLATIN [Suspect]
     Dosage: POSTOPERATIVE: 2 CYCLES
     Route: 065

REACTIONS (5)
  - DIARRHOEA [None]
  - FATIGUE [None]
  - LEUKOPENIA [None]
  - NEUTROPENIA [None]
  - THROMBOSIS [None]
